FAERS Safety Report 8919117 (Version 1)
Quarter: 2012Q4

REPORT INFORMATION
  Report Type: 
  Country: US (occurrence: US)
  Receive Date: 20121121
  Receipt Date: 20121121
  Transmission Date: 20130627
  Serious: Yes (Other)
  Sender: FDA-Public Use
  Company Number: US-BAYER-2012-119489

PATIENT
  Age: 44 Year
  Sex: Female

DRUGS (10)
  1. OCELLA [Suspect]
  2. ZARAH [Suspect]
     Dosage: UNK
  3. SIMVASTATIN [Concomitant]
     Dosage: 40 mg, UNK
  4. METFORMIN [Concomitant]
     Dosage: 500 mg, UNK
  5. LISINOPRIL [Concomitant]
     Dosage: 10 mg, UNK
  6. CRESTOR [Concomitant]
     Dosage: 10 mg, UNK
  7. FUROSEMIDE [Concomitant]
     Dosage: 40 mg, UNK
  8. SYMBICORT [Concomitant]
     Dosage: 160/4.5mcg
  9. ZYRTEC [Concomitant]
  10. EPIPEN 2-PAK [Concomitant]

REACTIONS (1)
  - Deep vein thrombosis [None]
